FAERS Safety Report 6491412-3 (Version None)
Quarter: 2009Q4

REPORT INFORMATION
  Report Type: 
  Country: None (occurrence: None)
  Receive Date: 20091123
  Receipt Date: 20090819
  Transmission Date: 20100525
  Serious: No
  Sender: FDA-Public Use
  Company Number: 8050698

PATIENT
  Age: 41 Year
  Sex: Male

DRUGS (1)
  1. CIMZIA [Suspect]
     Dosage: 400 MG SC
     Route: 058
     Dates: start: 20090102

REACTIONS (4)
  - DECREASED APPETITE [None]
  - MOUTH ULCERATION [None]
  - OROPHARYNGEAL PAIN [None]
  - WEIGHT DECREASED [None]
